FAERS Safety Report 6530226-2 (Version None)
Quarter: 2010Q1

REPORT INFORMATION
  Report Type: 
  Country: None (occurrence: None)
  Receive Date: 20100107
  Receipt Date: 20091230
  Transmission Date: 20100710
  Serious: Yes (Other)
  Sender: FDA-Public Use
  Company Number: US-PFIZER INC-2010000427

PATIENT

DRUGS (1)
  1. LIPITOR [Suspect]
     Route: 048
     Dates: start: 20070101

REACTIONS (3)
  - ERECTION INCREASED [None]
  - OVERDOSE [None]
  - PENILE DISCHARGE [None]
